FAERS Safety Report 8424190-9 (Version None)
Quarter: 2012Q2

REPORT INFORMATION
  Report Type: 
  Country: None (occurrence: None)
  Receive Date: 20120608
  Receipt Date: 20120228
  Transmission Date: 20120825
  Serious: No
  Sender: FDA-Public Use
  Company Number: US-ASTRAZENECA-2012SE14250

PATIENT
  Age: 85 Year
  Sex: Female

DRUGS (1)
  1. PULMICORT [Suspect]
     Route: 055

REACTIONS (5)
  - INCREASED UPPER AIRWAY SECRETION [None]
  - MALAISE [None]
  - OFF LABEL USE [None]
  - DYSPNOEA [None]
  - COUGH [None]
